FAERS Safety Report 13349940 (Version 1)
Quarter: 2017Q1

REPORT INFORMATION
  Report Type: Spontaneous
  Country: US (occurrence: US)
  Receive Date: 20170318
  Receipt Date: 20170318
  Transmission Date: 20170429
  Serious: Yes (Disabling)
  Sender: FDA-Public Use
  Company Number: None

PATIENT
  Age: 40 Year
  Sex: Female
  Weight: 108.9 kg

DRUGS (4)
  1. IBUPROFEN. [Concomitant]
     Active Substance: IBUPROFEN
  2. THORNE MULTIVITAMIN [Concomitant]
  3. MULTIHANCE [Suspect]
     Active Substance: GADOBENATE DIMEGLUMINE
     Indication: SCAN WITH CONTRAST
     Route: 042
     Dates: start: 20170313, end: 20170313
  4. MULTIHANCE [Suspect]
     Active Substance: GADOBENATE DIMEGLUMINE
     Indication: NUCLEAR MAGNETIC RESONANCE IMAGING
     Route: 042
     Dates: start: 20170313, end: 20170313

REACTIONS (16)
  - Paraesthesia [None]
  - Injection site swelling [None]
  - Malaise [None]
  - Paraesthesia oral [None]
  - Pharyngeal paraesthesia [None]
  - Periorbital oedema [None]
  - Initial insomnia [None]
  - Renal pain [None]
  - Weight decreased [None]
  - Restlessness [None]
  - Feeling cold [None]
  - Fatigue [None]
  - Feeling hot [None]
  - Injection site pain [None]
  - Nausea [None]
  - Back pain [None]

NARRATIVE: CASE EVENT DATE: 20170313
